FAERS Safety Report 10076816 (Version 1)
Quarter: 2014Q2

REPORT INFORMATION
  Report Type: Spontaneous
  Country: US (occurrence: None)
  Receive Date: 20140410
  Receipt Date: 20140410
  Transmission Date: 20141212
  Serious: Yes (Death)
  Sender: FDA-Public Use
  Company Number: UTC-046752

PATIENT
  Age: 80 Year
  Sex: Female

DRUGS (12)
  1. TYVASO (0.6 MILLIGRAM/MILLILITERS, AEROSOL FOR INHALATION) (TREPROSTINIL SODIUM) [Suspect]
     Indication: PULMONARY HYPERTENSION
     Route: 055
     Dates: start: 20121210
  2. PERCOCET (TYLOX) [Concomitant]
  3. POTASSIUM [Concomitant]
  4. PREDNISONE [Concomitant]
  5. MAXZIDE (DYAZIDE) [Concomitant]
  6. ACTONEL (RISEDRONATE SODIUM) [Concomitant]
  7. ULTRACET [Concomitant]
  8. ADVIAR (SERETIDE) [Concomitant]
  9. ROBAXIN (METHOCARBAMOL) [Concomitant]
  10. PRAVACHOL (PRAVASTATIN SODIUM) [Concomitant]
  11. PLAQUENIL (HYDROXYCHLOROQUINE) [Concomitant]
  12. KLOR-CON (POTASSIUM CHLORIDE) [Concomitant]

REACTIONS (1)
  - Death [None]
